FAERS Safety Report 15666981 (Version 4)
Quarter: 2019Q3

REPORT INFORMATION
  Report Type: Spontaneous
  Country: GB (occurrence: GB)
  Receive Date: 20181128
  Receipt Date: 20190828
  Transmission Date: 20191004
  Serious: Yes (Death, Hospitalization, Other)
  Sender: FDA-Public Use
  Company Number: GB-SA-2018SA319339

PATIENT
  Age: 42 Year
  Sex: Female

DRUGS (2)
  1. LEMTRADA [Suspect]
     Active Substance: ALEMTUZUMAB
     Indication: RELAPSING-REMITTING MULTIPLE SCLEROSIS
     Dosage: UNK
     Route: 041
     Dates: start: 20181001, end: 20181003
  2. LEMTRADA [Suspect]
     Active Substance: ALEMTUZUMAB
     Dosage: UNK
     Route: 041
     Dates: start: 201710, end: 2017

REACTIONS (10)
  - Necrotising fasciitis [Fatal]
  - Pain [Fatal]
  - Postoperative wound complication [Fatal]
  - Blood pressure decreased [Fatal]
  - Swelling [Fatal]
  - Body temperature increased [Fatal]
  - Breast cancer [Not Recovered/Not Resolved]
  - Malaise [Fatal]
  - Wound secretion [Fatal]
  - Wound complication [Fatal]

NARRATIVE: CASE EVENT DATE: 201810
